FAERS Safety Report 26068857 (Version 1)
Quarter: 2025Q4

REPORT INFORMATION
  Report Type: Spontaneous
  Country: CN (occurrence: CN)
  Receive Date: 20251120
  Receipt Date: 20251120
  Transmission Date: 20260117
  Serious: Yes (Hospitalization, Other)
  Sender: DR REDDYS
  Company Number: CN-CHN-CHN/2025/11/017415

PATIENT
  Age: 74 Year
  Sex: Male

DRUGS (4)
  1. ABIRATERONE [Suspect]
     Active Substance: ABIRATERONE
     Indication: Prostate cancer
     Route: 048
     Dates: start: 20230625
  2. PREDNISONE ACETATE [Concomitant]
     Active Substance: PREDNISONE ACETATE
     Indication: Prostate cancer
     Route: 048
     Dates: start: 20230625
  3. LEUPROLIDE ACETATE [Concomitant]
     Active Substance: LEUPROLIDE ACETATE
     Indication: Prostate cancer
     Dosage: SUSTAINED-RELEASE MICROSPHERES FOR INJECTION 3.75 MG?SUBCUTANEOUSLY (SC) Q4W
     Route: 058
     Dates: start: 20230625
  4. NIFEDIPINE [Concomitant]
     Active Substance: NIFEDIPINE
     Indication: Hypertension
     Dosage: SUSTAINED-RELEASE MICROSPHERES FOR INJECTION 3.75 MG?SUBCUTANEOUSLY (SC) Q4W
     Route: 048

REACTIONS (2)
  - Hypokalaemia [Recovering/Resolving]
  - Muscular weakness [Recovering/Resolving]

NARRATIVE: CASE EVENT DATE: 20230915
